FAERS Safety Report 7361770-6 (Version None)
Quarter: 2011Q1

REPORT INFORMATION
  Report Type: 
  Country: None (occurrence: None)
  Receive Date: 20110318
  Receipt Date: 20110316
  Transmission Date: 20110831
  Serious: Yes (Other)
  Sender: FDA-Public Use
  Company Number: US-MERCK-1103USA02137

PATIENT
  Age: 66 Year
  Sex: Female

DRUGS (1)
  1. FOSAMAX PLUS D [Suspect]
     Route: 048

REACTIONS (7)
  - MUSCULAR WEAKNESS [None]
  - PALPITATIONS [None]
  - BONE PAIN [None]
  - FALL [None]
  - CHEST PAIN [None]
  - MYOCARDIAL INFARCTION [None]
  - OSTEOPOROSIS [None]
